FAERS Safety Report 7024504-0 (Version None)
Quarter: 2010Q4

REPORT INFORMATION
  Report Type: 
  Country: None (occurrence: None)
  Receive Date: 20101001
  Receipt Date: 20100929
  Transmission Date: 20110411
  Serious: Yes (Other)
  Sender: FDA-Public Use
  Company Number: A0883856A

PATIENT
  Sex: Female

DRUGS (4)
  1. ALBENDAZOLE [Suspect]
     Indication: STRONGYLOIDIASIS
     Dosage: 400MG TWICE PER DAY
     Dates: start: 20100830, end: 20100906
  2. LEVOTHYROXINE SODIUM [Concomitant]
     Indication: HYPOTHYROIDISM
     Dosage: 50MCG PER DAY
     Route: 048
     Dates: start: 20100827
  3. ATORVASTATIN [Concomitant]
     Dosage: 20MG PER DAY
     Route: 048
     Dates: start: 20100805
  4. DILTIAZEM [Concomitant]
     Dosage: 120MG PER DAY
     Route: 048
     Dates: start: 20100805

REACTIONS (5)
  - ALANINE AMINOTRANSFERASE INCREASED [None]
  - ASPARTATE AMINOTRANSFERASE INCREASED [None]
  - BLOOD AMYLASE INCREASED [None]
  - GAMMA-GLUTAMYLTRANSFERASE INCREASED [None]
  - LIVER FUNCTION TEST ABNORMAL [None]
